FAERS Safety Report 20077909 (Version 4)
Quarter: 2022Q1

REPORT INFORMATION
  Report Type: Report from Study
  Country: SA (occurrence: SA)
  Receive Date: 20211116
  Receipt Date: 20220113
  Transmission Date: 20220423
  Serious: Yes (Hospitalization)
  Sender: FDA-Public Use
  Company Number: SA-BIOGEN-2021BI01067463

PATIENT
  Age: 9 Year
  Sex: Female
  Weight: 40 kg

DRUGS (3)
  1. SPINRAZA [Suspect]
     Active Substance: NUSINERSEN
     Indication: Spinal muscular atrophy
     Dosage: LOADING DOSES 0, 14, 28, 63 THEN 1 MAINTENANCE DOSE EVERY 4 MONTHS
     Route: 037
     Dates: start: 20211104
  2. SPINRAZA [Suspect]
     Active Substance: NUSINERSEN
     Dosage: MAINTENANCE DOSE EVERY 4 MONTHS
     Route: 065
  3. SPINRAZA [Suspect]
     Active Substance: NUSINERSEN
     Route: 065
     Dates: start: 20211230

REACTIONS (1)
  - Post lumbar puncture syndrome [Not Recovered/Not Resolved]

NARRATIVE: CASE EVENT DATE: 20211104
